FAERS Safety Report 12351713 (Version 1)
Quarter: 2016Q2

REPORT INFORMATION
  Report Type: Spontaneous
  Country: ES (occurrence: ES)
  Receive Date: 20160510
  Receipt Date: 20160510
  Transmission Date: 20160815
  Serious: Yes (Death)
  Sender: FDA-Public Use
  Company Number: ES-SA-2016SA091216

PATIENT
  Age: 60 Year
  Sex: Female

DRUGS (1)
  1. MULTAQ [Suspect]
     Active Substance: DRONEDARONE
     Indication: ATRIAL FIBRILLATION
     Route: 048
     Dates: start: 201601, end: 201604

REACTIONS (2)
  - Hepatotoxicity [Fatal]
  - Jaundice [Unknown]

NARRATIVE: CASE EVENT DATE: 201604
